FAERS Safety Report 24732813 (Version 2)
Quarter: 2024Q4

REPORT INFORMATION
  Report Type: Report from Study
  Country: BR (occurrence: BR)
  Receive Date: 20241213
  Receipt Date: 20241217
  Transmission Date: 20250114
  Serious: Yes (Death, Other)
  Sender: MYLAN
  Company Number: BR-MYLANLABS-2024M1111941

PATIENT
  Sex: Female

DRUGS (1)
  1. XALATAN [Suspect]
     Active Substance: LATANOPROST
     Indication: Glaucoma
     Dosage: 1 GTT DROPS, PM
     Route: 047
     Dates: start: 1999, end: 202402

REACTIONS (5)
  - Abdominal neoplasm [Fatal]
  - Blindness [Not Recovered/Not Resolved]
  - Diabetes mellitus [Not Recovered/Not Resolved]
  - Gait disturbance [Not Recovered/Not Resolved]
  - Osteoporosis [Not Recovered/Not Resolved]

NARRATIVE: CASE EVENT DATE: 20070101
